FAERS Safety Report 20361043 (Version 2)
Quarter: 2022Q1

REPORT INFORMATION
  Report Type: Spontaneous
  Country: JP (occurrence: JP)
  Receive Date: 20220121
  Receipt Date: 20220207
  Transmission Date: 20220423
  Serious: Yes (Other)
  Sender: FDA-Public Use
  Company Number: JP-Teva Takeda Yakuhin-2021-JP-005468J

PATIENT
  Age: 57 Year
  Sex: Male

DRUGS (2)
  1. CERCINE [Suspect]
     Active Substance: DIAZEPAM
     Indication: Magnetic resonance imaging
     Route: 065
     Dates: start: 20210729
  2. CERCINE [Suspect]
     Active Substance: DIAZEPAM
     Indication: Premedication

REACTIONS (10)
  - Gait inability [Unknown]
  - Dysarthria [Unknown]
  - Dysarthria [Unknown]
  - Fall [Unknown]
  - Dizziness [Unknown]
  - Gait disturbance [Unknown]
  - Dizziness [Unknown]
  - Muscular weakness [Unknown]
  - Ataxia [Unknown]
  - Product use in unapproved indication [Unknown]

NARRATIVE: CASE EVENT DATE: 20210729
